FAERS Safety Report 25403468 (Version 2)
Quarter: 2025Q2

REPORT INFORMATION
  Report Type: Report from Study
  Country: US (occurrence: US)
  Receive Date: 20250605
  Receipt Date: 20250627
  Transmission Date: 20250716
  Serious: Yes (Other)
  Sender: ABBVIE
  Company Number: US-ABBVIE-6307706

PATIENT
  Sex: Female

DRUGS (2)
  1. CREON [Suspect]
     Active Substance: PANCRELIPASE AMYLASE\PANCRELIPASE LIPASE\PANCRELIPASE PROTEASE
     Indication: Product used for unknown indication
     Route: 048
     Dates: start: 202412
  2. CREON [Suspect]
     Active Substance: PANCRELIPASE AMYLASE\PANCRELIPASE LIPASE\PANCRELIPASE PROTEASE
     Indication: Product used for unknown indication
     Route: 048
     Dates: start: 20250124

REACTIONS (11)
  - Sepsis [Recovering/Resolving]
  - Cardiac failure [Unknown]
  - Hernia [Recovered/Resolved]
  - Chronic obstructive pulmonary disease [Unknown]
  - Systemic lupus erythematosus [Unknown]
  - Pain [Recovering/Resolving]
  - Renal failure [Recovering/Resolving]
  - Painful respiration [Recovering/Resolving]
  - Gout [Unknown]
  - Diabetes mellitus [Unknown]
  - Peripheral swelling [Recovering/Resolving]
